FAERS Safety Report 7009279-3 (Version None)
Quarter: 2010Q3

REPORT INFORMATION
  Report Type: 
  Country: None (occurrence: None)
  Receive Date: 20100923
  Receipt Date: 20100921
  Transmission Date: 20110219
  Serious: Yes (Hospitalization, Other)
  Sender: FDA-Public Use
  Company Number: ES-BRISTOL-MYERS SQUIBB COMPANY-15297922

PATIENT
  Sex: Female

DRUGS (1)
  1. REYATAZ [Suspect]

REACTIONS (5)
  - CHOLELITHIASIS [None]
  - JAUNDICE [None]
  - PHLEBITIS [None]
  - PYELONEPHRITIS [None]
  - RENAL PAIN [None]
